FAERS Safety Report 19276617 (Version 2)
Quarter: 2021Q2

REPORT INFORMATION
  Report Type: Spontaneous
  Country: US (occurrence: US)
  Receive Date: 20210519
  Receipt Date: 20210521
  Transmission Date: 20210717
  Serious: Yes (Other)
  Sender: FDA-Public Use
  Company Number: US-SUNOVION-2021SUN001846

PATIENT
  Sex: Female
  Weight: 54 kg

DRUGS (4)
  1. APTIOM [Suspect]
     Active Substance: ESLICARBAZEPINE ACETATE
     Dosage: 1000 MG, QD
     Route: 048
  2. LYRICA [Concomitant]
     Active Substance: PREGABALIN
     Dosage: 200 MG, BID
     Route: 048
  3. APTIOM [Suspect]
     Active Substance: ESLICARBAZEPINE ACETATE
     Dosage: UNK
     Route: 048
  4. APTIOM [Suspect]
     Active Substance: ESLICARBAZEPINE ACETATE
     Dosage: 1200 MG
     Route: 048

REACTIONS (9)
  - Seizure [Unknown]
  - Dental caries [Unknown]
  - Aneurysm [Unknown]
  - Trigeminal neuralgia [Unknown]
  - Migraine [Unknown]
  - Anxiety disorder [Unknown]
  - Neck pain [Unknown]
  - Back pain [Unknown]
  - Facial pain [Not Recovered/Not Resolved]
